FAERS Safety Report 18629136 (Version 1)
Quarter: 2020Q4

REPORT INFORMATION
  Report Type: Spontaneous
  Country: US (occurrence: US)
  Receive Date: 20201217
  Receipt Date: 20201217
  Transmission Date: 20210114
  Serious: Yes (Life-Threatening)
  Sender: FDA-Public Use
  Company Number: None

PATIENT
  Age: 67 Year
  Sex: Male
  Weight: 68.85 kg

DRUGS (1)
  1. BAMLANIVIMAB EUA [Suspect]
     Active Substance: BAMLANIVIMAB
     Indication: COVID-19
     Dosage: ?          OTHER FREQUENCY:ONCE;?
     Route: 041
     Dates: start: 20201217, end: 20201217

REACTIONS (6)
  - Lip swelling [None]
  - Rash [None]
  - Throat tightness [None]
  - Dyspnoea [None]
  - Chills [None]
  - Mouth swelling [None]

NARRATIVE: CASE EVENT DATE: 20201217
